FAERS Safety Report 5379839-4 (Version None)
Quarter: 2007Q3

REPORT INFORMATION
  Report Type: 
  Country: None (occurrence: None)
  Receive Date: 20070703
  Receipt Date: 20070615
  Transmission Date: 20080115
  Serious: Yes (Hospitalization, Other)
  Sender: FDA-Public Use
  Company Number: 2007BI013107

PATIENT
  Age: 82 Year
  Sex: Female

DRUGS (5)
  1. ZEVALIN [Suspect]
     Indication: B-CELL LYMPHOMA
     Dosage: 1X; IV
     Route: 042
     Dates: start: 20070201, end: 20070201
  2. ZEVALIN [Suspect]
     Indication: B-CELL LYMPHOMA
     Dosage: 1X; IV
     Route: 042
     Dates: start: 20070301, end: 20070301
  3. RITUXIMAB [Concomitant]
  4. AREDIA [Concomitant]
  5. IV SOLUTIONS (NOS) [Concomitant]

REACTIONS (10)
  - ABSCESS ORAL [None]
  - DISEASE PROGRESSION [None]
  - HEADACHE [None]
  - HEPATIC ENCEPHALOPATHY [None]
  - HYPERCALCAEMIA [None]
  - LEUKOPENIA [None]
  - METASTASIS [None]
  - OEDEMA PERIPHERAL [None]
  - ORAL CANDIDIASIS [None]
  - VISUAL DISTURBANCE [None]
